FAERS Safety Report 7419962-3 (Version None)
Quarter: 2011Q2

REPORT INFORMATION
  Report Type: 
  Country: None (occurrence: None)
  Receive Date: 20110418
  Receipt Date: 20110407
  Transmission Date: 20111010
  Serious: Yes (Hospitalization)
  Sender: FDA-Public Use
  Company Number: US-BIOGENIDEC-2010BI041108

PATIENT
  Age: 77 Year
  Sex: Female

DRUGS (1)
  1. AVONEX [Suspect]
     Indication: MULTIPLE SCLEROSIS
     Route: 030
     Dates: start: 20000201

REACTIONS (6)
  - PYREXIA [None]
  - HYDRONEPHROSIS [None]
  - DYSPHAGIA [None]
  - UROSEPSIS [None]
  - MYOCARDIAL INFARCTION [None]
  - URINARY TRACT INFECTION [None]
